FAERS Safety Report 23632982 (Version 2)
Quarter: 2024Q1

REPORT INFORMATION
  Report Type: Spontaneous
  Country: FR (occurrence: FR)
  Receive Date: 20240314
  Receipt Date: 20240318
  Transmission Date: 20240410
  Serious: Yes (Life-Threatening, Hospitalization, Other)
  Sender: FDA-Public Use
  Company Number: FR-PFIZER INC-PV202400027307

PATIENT
  Age: 17 Month
  Sex: Female

DRUGS (34)
  1. OXCARBAZEPINE [Suspect]
     Active Substance: OXCARBAZEPINE
     Indication: Dystonia
     Dosage: UNK
     Route: 065
     Dates: start: 201504
  2. OXCARBAZEPINE [Suspect]
     Active Substance: OXCARBAZEPINE
     Indication: Tongue biting
  3. OXCARBAZEPINE [Suspect]
     Active Substance: OXCARBAZEPINE
     Indication: Sedation
  4. OXCARBAZEPINE [Suspect]
     Active Substance: OXCARBAZEPINE
     Indication: Analgesic therapy
  5. DIAZEPAM [Suspect]
     Active Substance: DIAZEPAM
     Indication: Dystonia
     Dosage: 0.5 MG/KG
     Route: 065
     Dates: start: 20150413
  6. DIAZEPAM [Suspect]
     Active Substance: DIAZEPAM
     Indication: Tongue biting
  7. MORPHINE [Suspect]
     Active Substance: MORPHINE
     Indication: Dystonia
     Dosage: UNK
     Route: 065
     Dates: start: 20150412
  8. MORPHINE [Suspect]
     Active Substance: MORPHINE
     Indication: Tongue biting
  9. CLONAZEPAM [Suspect]
     Active Substance: CLONAZEPAM
     Indication: Dystonia
     Dosage: 0.05 MG, DAILY
     Route: 065
     Dates: start: 201504
  10. CLONAZEPAM [Suspect]
     Active Substance: CLONAZEPAM
     Indication: Tongue biting
     Dosage: 0.1 MG, DAILY
     Route: 065
     Dates: start: 201504
  11. CLONAZEPAM [Suspect]
     Active Substance: CLONAZEPAM
     Indication: Sedation
  12. CLONAZEPAM [Suspect]
     Active Substance: CLONAZEPAM
     Indication: Analgesic therapy
  13. ARTANE [Suspect]
     Active Substance: TRIHEXYPHENIDYL HYDROCHLORIDE
     Indication: Tongue biting
     Dosage: UNK
     Route: 065
     Dates: start: 201504
  14. ARTANE [Suspect]
     Active Substance: TRIHEXYPHENIDYL HYDROCHLORIDE
     Indication: Dystonia
  15. HYDROXYZINE [Suspect]
     Active Substance: HYDROXYZINE HYDROCHLORIDE
     Indication: Dystonia
     Dosage: UNK
     Route: 065
     Dates: start: 20150414
  16. HYDROXYZINE [Suspect]
     Active Substance: HYDROXYZINE HYDROCHLORIDE
     Indication: Tongue biting
  17. FOSPHENYTOIN SODIUM [Suspect]
     Active Substance: FOSPHENYTOIN SODIUM
     Indication: Dystonia
     Dosage: 15 MG/KG
     Route: 065
     Dates: start: 20150413
  18. FOSPHENYTOIN SODIUM [Suspect]
     Active Substance: FOSPHENYTOIN SODIUM
     Indication: Tongue biting
  19. ACETAMINOPHEN [Suspect]
     Active Substance: ACETAMINOPHEN
     Indication: Tongue biting
     Dosage: UNK
     Route: 065
     Dates: start: 20150412
  20. ACETAMINOPHEN [Suspect]
     Active Substance: ACETAMINOPHEN
     Indication: Dystonia
  21. MIDAZOLAM [Concomitant]
     Active Substance: MIDAZOLAM
     Indication: Sedation
     Dosage: UNK
     Route: 065
     Dates: start: 201504
  22. MIDAZOLAM [Concomitant]
     Active Substance: MIDAZOLAM
     Indication: Tongue biting
  23. AMOXICILLIN\CLAVULANIC ACID [Concomitant]
     Active Substance: AMOXICILLIN\CLAVULANIC ACID
     Indication: Encephalitis
     Dosage: UNK
     Route: 065
     Dates: start: 20150413
  24. AMOXICILLIN\CLAVULANIC ACID [Concomitant]
     Active Substance: AMOXICILLIN\CLAVULANIC ACID
     Indication: Dystonia
  25. AMOXICILLIN\CLAVULANIC ACID [Concomitant]
     Active Substance: AMOXICILLIN\CLAVULANIC ACID
     Indication: Tongue biting
  26. SUFENTANIL [Concomitant]
     Active Substance: SUFENTANIL
     Indication: Sedation
     Dosage: UNK
     Route: 065
     Dates: start: 201504
  27. SUFENTANIL [Concomitant]
     Active Substance: SUFENTANIL
     Indication: Dystonia
     Route: 065
  28. XENAZINE [Concomitant]
     Active Substance: TETRABENAZINE
     Indication: Tongue biting
     Dosage: 5.8 MG/KG, QD (LESS THAN OR EQUAL TO 5.8 MG/KG PER DAY)
     Route: 065
  29. XENAZINE [Concomitant]
     Active Substance: TETRABENAZINE
     Indication: Dystonia
  30. XENAZINE [Concomitant]
     Active Substance: TETRABENAZINE
     Indication: Analgesic therapy
  31. ACYCLOVIR [Concomitant]
     Active Substance: ACYCLOVIR
     Indication: Encephalitis
     Dosage: UNK
     Route: 065
     Dates: start: 20150413
  32. ACYCLOVIR [Concomitant]
     Active Substance: ACYCLOVIR
     Indication: Dystonia
  33. LEVODOPA [Concomitant]
     Active Substance: LEVODOPA
     Indication: Dystonia
     Dosage: 3 MG/KG, QD (LESS THAN OR EQUAL TO 3 MG/KG, DAILY)
     Route: 065
     Dates: start: 20150430
  34. LEVODOPA [Concomitant]
     Active Substance: LEVODOPA
     Indication: Tongue biting

REACTIONS (2)
  - Drug ineffective [Recovering/Resolving]
  - Off label use [Unknown]
